FAERS Safety Report 6405293-7 (Version None)
Quarter: 2009Q4

REPORT INFORMATION
  Report Type: 
  Country: None (occurrence: None)
  Receive Date: 20091014
  Receipt Date: 20090930
  Transmission Date: 20100525
  Serious: Yes (Death, Hospitalization)
  Sender: FDA-Public Use
  Company Number: 2009AC000052

PATIENT
  Age: 59 Year
  Sex: Male

DRUGS (3)
  1. DIGOXIN [Suspect]
     Dates: start: 20051209
  2. COUMADIN [Concomitant]
  3. SPIRIVA [Concomitant]

REACTIONS (15)
  - AORTIC ARTERIOSCLEROSIS [None]
  - ATELECTASIS [None]
  - ATRIAL FIBRILLATION [None]
  - CARDIOMEGALY [None]
  - CONGESTIVE CARDIOMYOPATHY [None]
  - CYANOSIS [None]
  - ECONOMIC PROBLEM [None]
  - HYPOTENSION [None]
  - INTERMITTENT CLAUDICATION [None]
  - LERICHE SYNDROME [None]
  - MITRAL VALVE PROLAPSE [None]
  - MULTIPLE INJURIES [None]
  - PLEURAL EFFUSION [None]
  - PNEUMOCONIOSIS [None]
  - PULMONARY CONGESTION [None]
